FAERS Safety Report 23962261 (Version 1)
Quarter: 2024Q2

REPORT INFORMATION
  Report Type: Spontaneous
  Country: PE (occurrence: PE)
  Receive Date: 20240611
  Receipt Date: 20240611
  Transmission Date: 20240715
  Serious: Yes (Other)
  Sender: FDA-Public Use
  Company Number: PE-SUN PHARMACEUTICAL INDUSTRIES LTD-2024R1-450584

PATIENT
  Age: 45 Year
  Sex: Female

DRUGS (1)
  1. PREDNISONE [Suspect]
     Active Substance: PREDNISONE
     Indication: Oedema
     Dosage: 20 MILLIGRAM, DAILY
     Route: 065

REACTIONS (2)
  - Disease recurrence [Unknown]
  - Therapeutic response decreased [Unknown]
